FAERS Safety Report 21785144 (Version 4)
Quarter: 2023Q1

REPORT INFORMATION
  Report Type: Spontaneous
  Country: IE (occurrence: IE)
  Receive Date: 20221227
  Receipt Date: 20230207
  Transmission Date: 20230418
  Serious: Yes (Other)
  Sender: FDA-Public Use
  Company Number: IE-ROCHE-3205955

PATIENT
  Age: 58 Year
  Sex: Male
  Weight: 100 kg

DRUGS (21)
  1. LENALIDOMIDE [Suspect]
     Active Substance: LENALIDOMIDE
     Indication: Follicular lymphoma
     Dosage: UNK
     Route: 065
     Dates: start: 20220505, end: 20220726
  2. IFOSFAMIDE [Suspect]
     Active Substance: IFOSFAMIDE
     Indication: Follicular lymphoma
     Dosage: UNK
     Route: 065
     Dates: start: 20220104, end: 20220220
  3. IDELALISIB [Suspect]
     Active Substance: IDELALISIB
     Indication: Follicular lymphoma
     Dosage: UNK
     Route: 065
     Dates: start: 20220225, end: 20220501
  4. IDELALISIB [Suspect]
     Active Substance: IDELALISIB
     Dosage: UNK
     Route: 065
     Dates: start: 20220225, end: 20220517
  5. CISPLATIN [Suspect]
     Active Substance: CISPLATIN
     Indication: Follicular lymphoma
     Dosage: UNK
     Route: 065
     Dates: start: 20220902, end: 20221019
  6. CARBOPLATIN [Suspect]
     Active Substance: CARBOPLATIN
     Indication: Follicular lymphoma
     Dosage: UNK
     Route: 065
     Dates: start: 20220104, end: 20220220
  7. METHYLPREDNISOLONE [Suspect]
     Active Substance: METHYLPREDNISOLONE
     Indication: Follicular lymphoma
     Dosage: UNK
     Route: 065
     Dates: start: 20220902, end: 20221019
  8. CYTARABINE [Suspect]
     Active Substance: CYTARABINE
     Indication: Follicular lymphoma
     Dosage: UNK
     Route: 065
     Dates: start: 20220902, end: 20221019
  9. BENDAMUSTINE [Suspect]
     Active Substance: BENDAMUSTINE
     Indication: Follicular lymphoma
     Dosage: UNK
     Route: 065
     Dates: start: 20220505, end: 20220726
  10. OBINUTUZUMAB [Suspect]
     Active Substance: OBINUTUZUMAB
     Indication: Follicular lymphoma
     Dosage: UNK
     Route: 042
     Dates: start: 20210414, end: 20211105
  11. ETOPOSIDE [Suspect]
     Active Substance: ETOPOSIDE
     Indication: Follicular lymphoma
     Dosage: UNK
     Route: 065
     Dates: start: 20220104, end: 20220220
  12. ETOPOSIDE [Suspect]
     Active Substance: ETOPOSIDE
     Dosage: UNK
     Route: 065
     Dates: start: 20220902, end: 20221019
  13. RITUXIMAB [Suspect]
     Active Substance: RITUXIMAB
     Indication: Follicular lymphoma
     Dosage: UNK
     Route: 065
     Dates: start: 20220104, end: 20220220
  14. RITUXIMAB [Suspect]
     Active Substance: RITUXIMAB
     Dosage: UNK
     Route: 065
     Dates: start: 20220505, end: 20220726
  15. RITUXIMAB [Suspect]
     Active Substance: RITUXIMAB
     Dosage: UNK
     Route: 065
     Dates: start: 20220902, end: 20221019
  16. VINCRISTINE [Suspect]
     Active Substance: VINCRISTINE
     Indication: Follicular lymphoma
     Dosage: UNK
     Route: 065
     Dates: start: 20210414, end: 20211105
  17. PREDNISONE [Suspect]
     Active Substance: PREDNISONE
     Indication: Follicular lymphoma
     Dosage: UNK
     Route: 065
     Dates: start: 20210414, end: 20211105
  18. CYCLOPHOSPHAMIDE [Suspect]
     Active Substance: CYCLOPHOSPHAMIDE
     Indication: Follicular lymphoma
     Dosage: UNK
     Route: 065
     Dates: start: 20210414, end: 20211105
  19. MOSUNETUZUMAB [Suspect]
     Active Substance: MOSUNETUZUMAB
     Indication: Follicular lymphoma
     Dosage: UNK
     Route: 042
     Dates: start: 20221124
  20. DOXORUBICIN [Suspect]
     Active Substance: DOXORUBICIN
     Indication: Follicular lymphoma
     Dosage: UNK
     Route: 065
     Dates: start: 20210414, end: 20211105
  21. SULFAMETHOXAZOLE\TRIMETHOPRIM [Concomitant]
     Active Substance: SULFAMETHOXAZOLE\TRIMETHOPRIM
     Dosage: 960 GRAM
     Route: 065

REACTIONS (4)
  - Disease progression [Unknown]
  - COVID-19 [Recovered/Resolved]
  - Blood lactate dehydrogenase increased [Unknown]
  - Treatment failure [Unknown]

NARRATIVE: CASE EVENT DATE: 20221201
